FAERS Safety Report 19202037 (Version 1)
Quarter: 2021Q2

REPORT INFORMATION
  Report Type: Spontaneous
  Country: US (occurrence: US)
  Receive Date: 20210430
  Receipt Date: 20210430
  Transmission Date: 20210717
  Serious: Yes (Other)
  Sender: FDA-Public Use
  Company Number: US-CONCORD BIOTECH LIMITED-CBL202104-000208

PATIENT
  Age: 35 Year
  Sex: Male

DRUGS (4)
  1. MYCOPHENOLATE MOFETIL. [Suspect]
     Active Substance: MYCOPHENOLATE MOFETIL
     Indication: HENOCH-SCHONLEIN PURPURA NEPHRITIS
     Dosage: 1 G TWICE DAILY
     Route: 048
  2. CYCLOPHOSPHAMIDE. [Concomitant]
     Active Substance: CYCLOPHOSPHAMIDE
     Indication: HENOCH-SCHONLEIN PURPURA NEPHRITIS
     Dosage: 15 MG/KG X 1
     Route: 042
  3. PREDNISONE. [Concomitant]
     Active Substance: PREDNISONE
     Dosage: TAPERED OFF
  4. PREDNISONE. [Concomitant]
     Active Substance: PREDNISONE
     Indication: HENOCH-SCHONLEIN PURPURA NEPHRITIS
     Dosage: 60 MG DAILY
     Route: 048

REACTIONS (4)
  - Haematochezia [Unknown]
  - Product use in unapproved indication [Unknown]
  - Pancytopenia [Unknown]
  - Epistaxis [Unknown]
